FAERS Safety Report 20756303 (Version 1)
Quarter: 2022Q2

REPORT INFORMATION
  Report Type: Spontaneous
  Country: US (occurrence: US)
  Receive Date: 20220427
  Receipt Date: 20220427
  Transmission Date: 20220721
  Serious: Yes (Other)
  Sender: FDA-Public Use
  Company Number: US-MALLINCKRODT-T202202070

PATIENT
  Age: 0 Year
  Sex: Male

DRUGS (2)
  1. INOMAX [Suspect]
     Active Substance: NITRIC OXIDE
     Indication: Pulmonary hypertension
     Dosage: 20 PPM, VIA INHALATION
     Route: 055
     Dates: start: 20220329
  2. INOMAX [Suspect]
     Active Substance: NITRIC OXIDE
     Indication: Patent ductus arteriosus

REACTIONS (2)
  - Oxygen saturation decreased [Recovered/Resolved]
  - Device malfunction [Unknown]

NARRATIVE: CASE EVENT DATE: 20220422
